FAERS Safety Report 10332847 (Version 1)
Quarter: 2014Q3

REPORT INFORMATION
  Report Type: Spontaneous
  Country: CA (occurrence: None)
  Receive Date: 20140718
  Receipt Date: 20140718
  Transmission Date: 20150326
  Serious: Yes (Hospitalization, Other)
  Sender: FDA-Public Use
  Company Number: 2014/048

PATIENT
  Age: 63 Year
  Sex: Male
  Weight: 74 kg

DRUGS (11)
  1. METOPROLOL TARTRATE. [Suspect]
     Active Substance: METOPROLOL TARTRATE
     Route: 048
  2. ACETYSALICYLIC ACID [Concomitant]
  3. ATORVASTATIN [Concomitant]
     Active Substance: ATORVASTATIN
  4. DOMPERIDONE [Concomitant]
     Active Substance: DOMPERIDONE
  5. POTASSIUM CHLORIDE(NO PREF. NAME) [Concomitant]
  6. CICLORIX 1% [Concomitant]
  7. TERBINAFINE [Suspect]
     Active Substance: TERBINAFINE
     Indication: ONYCHOMYCOSIS
     Route: 048
     Dates: start: 20090805, end: 20090924
  8. CLOPIDOGREL [Concomitant]
     Active Substance: CLOPIDOGREL BISULFATE
  9. TRANDOLAPRIL. [Concomitant]
     Active Substance: TRANDOLAPRIL
  10. FUROSEMIDE(NO PREF. NAME) [Concomitant]
  11. ACETAMINOPHEN. [Concomitant]
     Active Substance: ACETAMINOPHEN

REACTIONS (6)
  - General physical health deterioration [None]
  - Sinus bradycardia [None]
  - Fall [None]
  - Dementia Alzheimer^s type [None]
  - Confusional state [None]
  - Dementia [None]
